FAERS Safety Report 19537924 (Version 1)
Quarter: 2021Q3

REPORT INFORMATION
  Report Type: Spontaneous
  Country: US (occurrence: US)
  Receive Date: 20210713
  Receipt Date: 20210713
  Transmission Date: 20211014
  Serious: Yes (Hospitalization, Other)
  Sender: FDA-Public Use
  Company Number: US-BIOVITRUM-2021US3749

PATIENT
  Age: 29 Year
  Sex: Female

DRUGS (1)
  1. KINERET [Suspect]
     Active Substance: ANAKINRA
     Indication: PERICARDIAL EFFUSION
     Route: 058
     Dates: start: 20210321

REACTIONS (9)
  - Haematoma [Unknown]
  - Pericarditis [Unknown]
  - Injection site mass [Unknown]
  - Injection site discolouration [Unknown]
  - Injection site haemorrhage [Unknown]
  - Drug hypersensitivity [Unknown]
  - Condition aggravated [Unknown]
  - Off label use [Unknown]
  - Urticaria [Unknown]

NARRATIVE: CASE EVENT DATE: 20210321
